FAERS Safety Report 24465223 (Version 1)
Quarter: 2024Q4

REPORT INFORMATION
  Report Type: Report from Study
  Country: US (occurrence: US)
  Receive Date: 20241018
  Receipt Date: 20241018
  Transmission Date: 20250114
  Serious: No
  Sender: ROCHE
  Company Number: US-ROCHE-3520700

PATIENT

DRUGS (1)
  1. XOLAIR [Suspect]
     Active Substance: OMALIZUMAB
     Indication: Cold urticaria
     Dosage: 2X150/MONTHS
     Route: 065

REACTIONS (4)
  - Muscle twitching [Not Recovered/Not Resolved]
  - Off label use [Unknown]
  - Headache [Unknown]
  - Malaise [Unknown]
